FAERS Safety Report 15565843 (Version 2)
Quarter: 2018Q4

REPORT INFORMATION
  Report Type: Spontaneous
  Country: US (occurrence: US)
  Receive Date: 20181030
  Receipt Date: 20181106
  Transmission Date: 20190205
  Serious: Yes (Hospitalization, Other)
  Sender: FDA-Public Use
  Company Number: US-PFIZER INC-2018438387

PATIENT
  Age: 56 Year
  Sex: Male

DRUGS (5)
  1. ADENOSINE. [Concomitant]
     Active Substance: ADENOSINE
     Indication: TACHYCARDIA
     Dosage: 6 MG, UNK
     Route: 042
  2. METOPROLOL TARTRATE. [Concomitant]
     Active Substance: METOPROLOL TARTRATE
     Dosage: UNK
  3. HYDROCHLOROTHIAZIDE. [Concomitant]
     Active Substance: HYDROCHLOROTHIAZIDE
     Dosage: UNK
  4. EPINEPHRINE. [Suspect]
     Active Substance: EPINEPHRINE
     Dosage: 0.4 UG/(KG EVERY MIN)
  5. EPINEPHRINE. [Suspect]
     Active Substance: EPINEPHRINE
     Indication: CARDIOVASCULAR EVALUATION
     Dosage: 0.2 UG/(KG EVERY MIN)

REACTIONS (4)
  - Hypertension [Recovered/Resolved]
  - Bradycardia [Recovered/Resolved]
  - Atrioventricular block [Recovered/Resolved]
  - Nodal rhythm [Recovered/Resolved]
